FAERS Safety Report 5523298-5 (Version None)
Quarter: 2007Q4

REPORT INFORMATION
  Report Type: 
  Country: None (occurrence: None)
  Receive Date: 20071121
  Receipt Date: 20071113
  Transmission Date: 20080405
  Serious: Yes (Hospitalization)
  Sender: FDA-Public Use
  Company Number: US-BAXTER-2007BH008998

PATIENT
  Age: 59 Year
  Sex: Female

DRUGS (5)
  1. CEFTRIAXONE [Suspect]
     Indication: OSTEOMYELITIS
     Route: 042
  2. VANCOMYCIN [Suspect]
     Indication: OSTEOMYELITIS
     Route: 042
  3. GLYBURIDE [Concomitant]
     Indication: DRUG USE FOR UNKNOWN INDICATION
     Route: 065
  4. PIOGLITAZONE [Concomitant]
     Indication: DRUG USE FOR UNKNOWN INDICATION
     Route: 065
  5. ISOPHANE INSULIN [Concomitant]
     Indication: CENTRAL NERVOUS SYSTEM INFECTION
     Route: 042

REACTIONS (1)
  - NEPHRITIS INTERSTITIAL [None]
